FAERS Safety Report 11937603 (Version 1)
Quarter: 2016Q1

REPORT INFORMATION
  Report Type: Spontaneous
  Country: FR (occurrence: FR)
  Receive Date: 20160122
  Receipt Date: 20160122
  Transmission Date: 20160526
  Serious: Yes (Hospitalization)
  Sender: FDA-Public Use
  Company Number: FR-009507513-1601FRA004195

PATIENT
  Age: 84 Year
  Sex: Female

DRUGS (3)
  1. NORSET [Suspect]
     Active Substance: MIRTAZAPINE
     Dosage: 0.3 MG/L (NORMAL VALUES { 0.3 MG, TOXIC VALUE } 1MG/L)
     Route: 048
     Dates: start: 20151108
  2. NORSET [Suspect]
     Active Substance: MIRTAZAPINE
     Dosage: 0.08 MG/L (NORMAL VALUES { 0.3 MG, TOXIC VALUE } 1MG/L)
     Route: 048
     Dates: start: 20151109
  3. NORSET [Suspect]
     Active Substance: MIRTAZAPINE
     Dosage: 10.5 ML (157.5 MG), 0.9 MG/L (NORMAL VALUES { 0.3 MG, TOXIC VALUE } 1MG/L)
     Route: 048
     Dates: start: 20151106

REACTIONS (1)
  - Accidental overdose [Unknown]

NARRATIVE: CASE EVENT DATE: 20151106
